FAERS Safety Report 11173707 (Version 7)
Quarter: 2017Q1

REPORT INFORMATION
  Report Type: Report from Study
  Country: PL (occurrence: PL)
  Receive Date: 20150609
  Receipt Date: 20170330
  Transmission Date: 20170428
  Serious: Yes (Hospitalization, Other)
  Sender: FDA-Public Use
  Company Number: PL-ROCHE-1588724

PATIENT
  Age: 66 Year
  Sex: Male
  Weight: 76 kg

DRUGS (73)
  1. FLUDARABINE [Suspect]
     Active Substance: FLUDARABINE PHOSPHATE
     Dosage: C1D3
     Route: 048
     Dates: start: 20150421, end: 20150421
  2. PARACETAMOLUM [Concomitant]
     Active Substance: ACETAMINOPHEN
     Route: 048
     Dates: start: 20150518, end: 20150518
  3. DIPHERGAN [Concomitant]
     Route: 048
     Dates: start: 20150504, end: 20150504
  4. SODIUM CHLORIDE. [Concomitant]
     Active Substance: SODIUM CHLORIDE
     Dosage: DOSE:20ML,?SAME DOSE DOSE WAS GIVEN TWO TIMES
     Route: 042
     Dates: start: 20150601, end: 20150601
  5. OBINUTUZUMAB [Suspect]
     Active Substance: OBINUTUZUMAB
     Dosage: C2D1, LAST DOSE PRIOR TO SAE 18/MAY/2015, FORM:LIQUID CONCENTRATE 100 MG/250ML?DRUG PERMANENTLY DISC
     Route: 042
     Dates: start: 20150518
  6. FLUDARABINE [Suspect]
     Active Substance: FLUDARABINE PHOSPHATE
     Dosage: C1D2
     Route: 048
     Dates: start: 20150420, end: 20150420
  7. CYCLOPHOSPHAMIDE. [Suspect]
     Active Substance: CYCLOPHOSPHAMIDE
     Dosage: C1D2, DOSE REDUCED
     Route: 048
     Dates: start: 20150420, end: 20150420
  8. ENCORTON [Suspect]
     Active Substance: PREDNISONE
     Route: 048
     Dates: start: 20150609, end: 20150615
  9. HYDROCORTISON [Suspect]
     Active Substance: HYDROCORTISONE
     Indication: CHRONIC LYMPHOCYTIC LEUKAEMIA
     Route: 048
     Dates: start: 20150401, end: 20150401
  10. POLOCARD [Concomitant]
     Active Substance: ASPIRIN
     Indication: PROPHYLAXIS
     Route: 048
     Dates: start: 2008
  11. THIOCODIN (POLAND) [Concomitant]
     Route: 048
     Dates: start: 20150413, end: 20150413
  12. PARACETAMOLUM [Concomitant]
     Active Substance: ACETAMINOPHEN
     Route: 048
     Dates: start: 20150504, end: 20150504
  13. SODIUM CHLORIDE. [Concomitant]
     Active Substance: SODIUM CHLORIDE
     Dosage: DOSE:1000 ML
     Route: 042
     Dates: start: 20150407, end: 20150408
  14. SODIUM CHLORIDE. [Concomitant]
     Active Substance: SODIUM CHLORIDE
     Dosage: SINGLE DOSE
     Route: 042
     Dates: start: 20150408, end: 20150408
  15. HEPATIL [Concomitant]
     Route: 048
     Dates: start: 20150402, end: 20150402
  16. HEPATIL [Concomitant]
     Route: 048
     Dates: start: 20150403, end: 20150408
  17. ENCORTON [Suspect]
     Active Substance: PREDNISONE
     Route: 048
     Dates: start: 20150616, end: 20150706
  18. ENCORTON [Suspect]
     Active Substance: PREDNISONE
     Route: 048
     Dates: start: 20150707, end: 20150729
  19. DEXAVEN [Suspect]
     Active Substance: DEXAMETHASONE
     Indication: DERMATITIS ALLERGIC
     Dosage: 8 IN 100 MG IN ML IN 0.9% SODIUM CHLORIDE
     Route: 042
     Dates: start: 20150601, end: 20150601
  20. APO-TAMIS [Concomitant]
     Indication: BENIGN PROSTATIC HYPERPLASIA
     Route: 048
     Dates: start: 2007
  21. NIVESTIM [Concomitant]
     Active Substance: FILGRASTIM
     Dosage: DOSE:48 MIU
     Route: 058
     Dates: start: 20150403, end: 20150405
  22. PANTOPRAZOLUM [Concomitant]
     Dosage: IN 0.9% SODIUM?CHLORIDE, 40 IN 20
     Route: 042
     Dates: start: 20150601, end: 20150601
  23. OBINUTUZUMAB [Suspect]
     Active Substance: OBINUTUZUMAB
     Dosage: C1D2
     Route: 042
     Dates: start: 20150420
  24. FLUDARABINE [Suspect]
     Active Substance: FLUDARABINE PHOSPHATE
     Dosage: C2D2
     Route: 048
     Dates: start: 20150519, end: 20150519
  25. ENCORTON [Suspect]
     Active Substance: PREDNISONE
     Dosage: EVERY OTHER DAY
     Route: 050
     Dates: start: 20150730, end: 20150812
  26. ENCORTON [Suspect]
     Active Substance: PREDNISONE
     Route: 048
     Dates: start: 20150604, end: 20150608
  27. CORHYDRON (POLAND) [Suspect]
     Active Substance: HYDROCORTISONE SODIUM SUCCINATE
     Indication: DERMATITIS ALLERGIC
     Dosage: 200 MG IN 20 ML
     Route: 042
     Dates: start: 20150601, end: 20150601
  28. FUROSEMID [Concomitant]
     Active Substance: FUROSEMIDE
     Route: 042
     Dates: start: 20150404, end: 20150404
  29. AMOKSIKLAV [Concomitant]
     Active Substance: AMOXICILLIN\CLAVULANATE POTASSIUM
     Route: 048
     Dates: start: 20150413, end: 20150419
  30. DIPHERGAN [Concomitant]
     Route: 048
     Dates: start: 20150401, end: 20150401
  31. OBINUTUZUMAB [Suspect]
     Active Substance: OBINUTUZUMAB
     Indication: CHRONIC LYMPHOCYTIC LEUKAEMIA
     Route: 042
     Dates: start: 20150401
  32. OBINUTUZUMAB [Suspect]
     Active Substance: OBINUTUZUMAB
     Dosage: C1D8
     Route: 042
     Dates: start: 20150427
  33. FLUDARABINE [Suspect]
     Active Substance: FLUDARABINE PHOSPHATE
     Indication: CHRONIC LYMPHOCYTIC LEUKAEMIA
     Dosage: C1D1
     Route: 048
     Dates: start: 20150401, end: 20150401
  34. CYCLOPHOSPHAMIDE. [Suspect]
     Active Substance: CYCLOPHOSPHAMIDE
     Dosage: C2D1
     Route: 048
     Dates: start: 20150518, end: 20150518
  35. DEXAVEN [Suspect]
     Active Substance: DEXAMETHASONE
     Route: 042
     Dates: start: 20150427, end: 20150427
  36. GLIBETIC (POLAND) [Concomitant]
     Indication: DIABETES MELLITUS
     Route: 048
     Dates: start: 2000
  37. INHIBACE [Concomitant]
     Active Substance: CILAZAPRIL ANHYDROUS
     Indication: CORONARY ARTERY DISEASE
     Route: 048
     Dates: start: 2010
  38. FUROSEMID [Concomitant]
     Active Substance: FUROSEMIDE
     Route: 042
     Dates: start: 20150406, end: 20150406
  39. FUROSEMID [Concomitant]
     Active Substance: FUROSEMIDE
     Route: 042
     Dates: start: 20150601, end: 20150601
  40. HYDROXIZINUM [Concomitant]
     Route: 048
     Dates: start: 20150404, end: 20150407
  41. SODIUM CHLORIDE. [Concomitant]
     Active Substance: SODIUM CHLORIDE
     Dosage: DOSE:1000 ML
     Route: 042
     Dates: start: 20150403, end: 20150406
  42. SODIUM CHLORIDE. [Concomitant]
     Active Substance: SODIUM CHLORIDE
     Dosage: DOSE:1000 ML
     Route: 042
     Dates: start: 20150402, end: 20150402
  43. PANTOPRAZOLUM [Concomitant]
     Indication: DERMATITIS ALLERGIC
     Route: 048
     Dates: start: 20150622
  44. OBINUTUZUMAB [Suspect]
     Active Substance: OBINUTUZUMAB
     Dosage: C1D15
     Route: 042
     Dates: start: 20150504
  45. ENCORTON [Suspect]
     Active Substance: PREDNISONE
     Indication: DERMATITIS ALLERGIC
     Route: 048
     Dates: start: 20150602, end: 20150604
  46. HYDROCORTISON [Suspect]
     Active Substance: HYDROCORTISONE
     Indication: DERMATITIS ALLERGIC
     Route: 065
     Dates: start: 20150602, end: 20150609
  47. FUROSEMID [Concomitant]
     Active Substance: FUROSEMIDE
     Route: 042
     Dates: start: 20150408, end: 20150408
  48. ZOCOR [Concomitant]
     Active Substance: SIMVASTATIN
     Indication: HYPERCHOLESTEROLAEMIA
     Route: 048
     Dates: start: 2005
  49. PARACETAMOLUM [Concomitant]
     Active Substance: ACETAMINOPHEN
     Route: 048
     Dates: start: 20150420, end: 20150420
  50. DIPHERGAN [Concomitant]
     Route: 048
     Dates: start: 20150518, end: 20150518
  51. TRIFAS [Concomitant]
     Route: 048
     Dates: start: 20150622
  52. FLUDARABINE [Suspect]
     Active Substance: FLUDARABINE PHOSPHATE
     Dosage: C2D1
     Route: 048
     Dates: start: 20150518, end: 20150518
  53. FLUDARABINE [Suspect]
     Active Substance: FLUDARABINE PHOSPHATE
     Dosage: C2D3?DRUG PERMANENTLY DISCONTINUED ON 29/JUL/2015 IN RESPONSE TO THE GENERALIZED ALLERGIC REACTION W
     Route: 048
     Dates: start: 20150520, end: 20150520
  54. CYCLOPHOSPHAMIDE. [Suspect]
     Active Substance: CYCLOPHOSPHAMIDE
     Indication: CHRONIC LYMPHOCYTIC LEUKAEMIA
     Dosage: C1D1
     Route: 048
     Dates: start: 20150401, end: 20150401
  55. CYCLOPHOSPHAMIDE. [Suspect]
     Active Substance: CYCLOPHOSPHAMIDE
     Dosage: C2D2
     Route: 048
     Dates: start: 20150519, end: 20150519
  56. DEXAVEN [Suspect]
     Active Substance: DEXAMETHASONE
     Route: 042
     Dates: start: 20150401, end: 20150401
  57. METFORMAX [Concomitant]
     Active Substance: METFORMIN HYDROCHLORIDE
     Route: 048
     Dates: start: 2007
  58. FUROSEMID [Concomitant]
     Active Substance: FUROSEMIDE
     Route: 042
     Dates: start: 20150402, end: 20150402
  59. ALLOPURINOL. [Concomitant]
     Active Substance: ALLOPURINOL
     Route: 048
     Dates: start: 20150504
  60. ALLOPURINOL. [Concomitant]
     Active Substance: ALLOPURINOL
     Route: 048
     Dates: start: 20150401, end: 20150401
  61. ALLOPURINOL. [Concomitant]
     Active Substance: ALLOPURINOL
     Route: 048
     Dates: start: 20150225, end: 20150504
  62. PARACETAMOLUM [Concomitant]
     Active Substance: ACETAMINOPHEN
     Route: 042
     Dates: start: 20150401, end: 20150402
  63. PARACETAMOLUM [Concomitant]
     Active Substance: ACETAMINOPHEN
     Route: 048
     Dates: start: 20150427, end: 20150427
  64. DIPHERGAN [Concomitant]
     Route: 048
     Dates: start: 20150420, end: 20150420
  65. DIPHERGAN [Concomitant]
     Route: 048
     Dates: start: 20150427, end: 20150427
  66. CYCLOPHOSPHAMIDE. [Suspect]
     Active Substance: CYCLOPHOSPHAMIDE
     Dosage: C1D3,
     Route: 048
     Dates: start: 20150421, end: 20150421
  67. CYCLOPHOSPHAMIDE. [Suspect]
     Active Substance: CYCLOPHOSPHAMIDE
     Dosage: C2D3?DRUG PERMANENTLY DISCONTINUED ON 29/JUL/2015 IN RESPONSE TO THE GENERALIZED ALLERGIC REACTION W
     Route: 048
     Dates: start: 20150520, end: 20150520
  68. DEXAVEN [Suspect]
     Active Substance: DEXAMETHASONE
     Indication: PROPHYLAXIS
     Route: 042
     Dates: start: 20150420, end: 20150420
  69. GLUCOBAY [Concomitant]
     Active Substance: ACARBOSE
     Indication: DIABETES MELLITUS
     Route: 048
     Dates: start: 2009
  70. METOPROLOL TARTRATE. [Concomitant]
     Active Substance: METOPROLOL TARTRATE
     Indication: CORONARY ARTERY DISEASE
     Route: 048
     Dates: start: 19971231
  71. FUROSEMID [Concomitant]
     Active Substance: FUROSEMIDE
     Indication: CORONARY ARTERY DISEASE
     Route: 048
     Dates: start: 2009
  72. ALLOPURINOL. [Concomitant]
     Active Substance: ALLOPURINOL
     Route: 048
     Dates: start: 20140402, end: 20150504
  73. ATORIS [Concomitant]
     Active Substance: ATORVASTATIN CALCIUM
     Route: 048
     Dates: start: 20150622

REACTIONS (2)
  - Diabetes mellitus inadequate control [Recovered/Resolved]
  - Dermatitis allergic [Recovered/Resolved]

NARRATIVE: CASE EVENT DATE: 20150525
